FAERS Safety Report 6620298-9 (Version None)
Quarter: 2010Q1

REPORT INFORMATION
  Report Type: 
  Country: None (occurrence: None)
  Receive Date: 20100308
  Receipt Date: 20100308
  Transmission Date: 20100710
  Serious: Yes (Life-Threatening)
  Sender: FDA-Public Use
  Company Number: None

PATIENT
  Age: 38 Year
  Sex: Female
  Weight: 63.5036 kg

DRUGS (1)
  1. MELOXICAM [Suspect]
     Indication: BACK PAIN
     Dosage: 1 DAILY PO
     Route: 048
     Dates: start: 20100301, end: 20100303

REACTIONS (6)
  - CHEST PAIN [None]
  - HEADACHE [None]
  - HEART RATE INCREASED [None]
  - HYPERTENSION [None]
  - SWELLING [None]
  - URINARY TRACT DISORDER [None]
